FAERS Safety Report 7090353-0 (Version None)
Quarter: 2010Q4

REPORT INFORMATION
  Report Type: 
  Country: None (occurrence: None)
  Receive Date: 20101109
  Receipt Date: 20101026
  Transmission Date: 20110411
  Serious: Yes (Other)
  Sender: FDA-Public Use
  Company Number: PHHY2010CA72272

PATIENT
  Sex: Female

DRUGS (5)
  1. ACLASTA [Suspect]
     Indication: OSTEOPOROSIS
     Dosage: 5 MG/100ML, ONCE A YEAR
     Route: 042
     Dates: start: 20090219
  2. ADVAIR DISKUS 100/50 [Concomitant]
  3. TAGAMET [Concomitant]
     Dosage: 300 MG BID
  4. NASONEX [Concomitant]
  5. RITALIN [Concomitant]

REACTIONS (5)
  - CONTUSION [None]
  - ECCHYMOSIS [None]
  - HAEMORRHAGE [None]
  - PIGMENTATION DISORDER [None]
  - SKIN ATROPHY [None]
